FAERS Safety Report 11985681 (Version 8)
Quarter: 2016Q3

REPORT INFORMATION
  Report Type: Report from Study
  Country: AU (occurrence: AU)
  Receive Date: 20160201
  Receipt Date: 20160819
  Transmission Date: 20161109
  Serious: Yes (Hospitalization)
  Sender: FDA-Public Use
  Company Number: PHHO2016AU001379

PATIENT
  Age: 58 Year
  Sex: Female

DRUGS (9)
  1. AIN457 [Suspect]
     Active Substance: SECUKINUMAB
     Indication: PSORIATIC ARTHROPATHY
     Dosage: 150 MG, UNK
     Route: 058
     Dates: start: 20151102
  2. ENDEP [Concomitant]
     Active Substance: AMITRIPTYLINE HYDROCHLORIDE
     Indication: PAIN
     Dosage: 10 MG, AT NIGHT
     Route: 048
     Dates: start: 20150330
  3. ONDANSETRON [Concomitant]
     Active Substance: ONDANSETRON
     Indication: NAUSEA
     Dosage: 4 MG, PRN
     Route: 042
     Dates: start: 20160122, end: 20160123
  4. AIN457 [Suspect]
     Active Substance: SECUKINUMAB
     Dosage: UNK
     Route: 058
     Dates: start: 20160201
  5. CRESTOR [Concomitant]
     Active Substance: ROSUVASTATIN CALCIUM
     Indication: HYPERLIPIDAEMIA
     Dosage: 5 MG, QD
     Route: 048
     Dates: start: 20151125, end: 20151206
  6. PREDNISONE. [Concomitant]
     Active Substance: PREDNISONE
     Indication: PSORIATIC ARTHROPATHY
     Dosage: 9 MG, QD
     Route: 048
     Dates: start: 20150331
  7. PANADEINE EXTRA [Concomitant]
     Indication: PSORIATIC ARTHROPATHY
     Dosage: NIGHT
     Route: 048
     Dates: start: 201410
  8. SYSTANE (HYPROMELLOSE 2910 (4000 MPA.S)) [Concomitant]
     Active Substance: HYPROMELLOSE 2910 (4000 MPA.S)
     Indication: DRY EYE
     Dosage: TID
     Route: 047
     Dates: start: 20090821
  9. MICARDIS [Concomitant]
     Active Substance: TELMISARTAN
     Indication: HYPERTENSION
     Dosage: 40 MG, QD
     Route: 048
     Dates: start: 201504

REACTIONS (2)
  - Sepsis [Recovered/Resolved]
  - Thermal burn [Recovered/Resolved]

NARRATIVE: CASE EVENT DATE: 20160121
